FAERS Safety Report 8291082-8 (Version None)
Quarter: 2012Q2

REPORT INFORMATION
  Report Type: 
  Country: None (occurrence: None)
  Receive Date: 20120417
  Receipt Date: 20110617
  Transmission Date: 20120825
  Serious: No
  Sender: FDA-Public Use
  Company Number: US-ASTRAZENECA-2011SE37071

PATIENT

DRUGS (7)
  1. ZOCOR [Concomitant]
  2. OPANA [Concomitant]
  3. LISINOPRIL [Concomitant]
  4. CLONAZEPAM [Concomitant]
  5. NEXIUM [Suspect]
     Route: 048
  6. AMLODIPINE [Concomitant]
  7. METOPROLOL TARTRATE [Concomitant]

REACTIONS (2)
  - CHOKING [None]
  - CHEST PAIN [None]
